FAERS Safety Report 9689389 (Version 1)
Quarter: 2013Q4

REPORT INFORMATION
  Report Type: Report from Study
  Country: US (occurrence: US)
  Receive Date: 20131114
  Receipt Date: 20131114
  Transmission Date: 20140711
  Serious: Yes (Other)
  Sender: FDA-Public Use
  Company Number: US-ABBVIE-13P-163-1166439-00

PATIENT
  Age: 48 Year
  Sex: Female

DRUGS (5)
  1. HUMIRA [Suspect]
     Indication: PSORIATIC ARTHROPATHY
     Route: 058
     Dates: end: 201308
  2. HUMIRA [Suspect]
     Route: 058
     Dates: start: 20131025
  3. LEVOTHYROXINE [Concomitant]
     Indication: HYPOTHYROIDISM
  4. PREDNISONE [Concomitant]
     Indication: PSORIATIC ARTHROPATHY
  5. ATELVIA [Concomitant]
     Indication: OSTEOPOROSIS

REACTIONS (5)
  - Joint swelling [Unknown]
  - Arthralgia [Unknown]
  - Joint swelling [Unknown]
  - Arthralgia [Unknown]
  - Skin cancer [Recovering/Resolving]
